FAERS Safety Report 9683974 (Version 2)
Quarter: 2013Q4

REPORT INFORMATION
  Report Type: Spontaneous
  Country: IT (occurrence: IT)
  Receive Date: 20131112
  Receipt Date: 20131202
  Transmission Date: 20140711
  Serious: Yes (Life-Threatening)
  Sender: FDA-Public Use
  Company Number: IT-CELGENEUS-083-21880-13105312

PATIENT
  Age: 75 Year
  Sex: Male

DRUGS (24)
  1. REVLIMID [Suspect]
     Indication: PLASMA CELL MYELOMA
     Dosage: 15 MILLIGRAM
     Route: 048
     Dates: start: 201107, end: 20130303
  2. DEXAMETHASONE [Concomitant]
     Indication: PLASMA CELL MYELOMA
     Route: 065
     Dates: start: 20110901, end: 20130303
  3. DEXAMETHASONE [Concomitant]
     Route: 065
     Dates: start: 20130418, end: 20130421
  4. DEXAMETHASONE [Concomitant]
     Route: 065
     Dates: start: 20130822, end: 20130825
  5. DEXAMETHASONE [Concomitant]
     Route: 065
     Dates: start: 20130901, end: 20130902
  6. PAMIDRONIC ACID DISODIUM [Concomitant]
     Indication: PRODUCT USED FOR UNKNOWN INDICATION
     Route: 041
  7. PAMIDRONIC ACID DISODIUM [Concomitant]
     Indication: HAEMATOPOIETIC STEM CELL MOBILISATION
  8. BISOPROLOL FUMARATE [Concomitant]
     Indication: PRODUCT USED FOR UNKNOWN INDICATION
     Route: 048
     Dates: start: 20130109, end: 20131007
  9. BISOPROLOL FUMARATE [Concomitant]
     Indication: HAEMATOPOIETIC STEM CELL MOBILISATION
  10. ALLOPURINOL [Concomitant]
     Indication: PRODUCT USED FOR UNKNOWN INDICATION
     Route: 048
     Dates: start: 20130122, end: 20131007
  11. ALLOPURINOL [Concomitant]
     Indication: HAEMATOPOIETIC STEM CELL MOBILISATION
  12. COUMADIN [Concomitant]
     Indication: ATRIAL FIBRILLATION
     Dosage: 30 TABLETS
     Route: 065
     Dates: start: 20120702, end: 20131007
  13. COUMADIN [Concomitant]
     Indication: HAEMATOPOIETIC STEM CELL MOBILISATION
  14. CARDIOASPIRIN [Concomitant]
     Indication: PRODUCT USED FOR UNKNOWN INDICATION
     Dosage: X30 TABLETS
     Route: 048
  15. EPREX [Concomitant]
     Indication: PRODUCT USED FOR UNKNOWN INDICATION
     Dosage: 10000UI/I ML
     Route: 065
  16. TACHIDOL [Concomitant]
     Indication: PAIN
     Dosage: X10 TABLET
     Route: 048
     Dates: start: 20130611, end: 20131007
  17. FERRO-GRAD [Concomitant]
     Indication: PRODUCT USED FOR UNKNOWN INDICATION
     Dosage: 1 POSOLOGICAL UNIT
     Route: 048
  18. PERIDON [Concomitant]
     Indication: PRODUCT USED FOR UNKNOWN INDICATION
     Dosage: X30 TAB
     Route: 048
  19. LEVOXACIN [Concomitant]
     Indication: COUGH
     Dosage: X5 TABLETS
     Route: 065
  20. VELCADE [Concomitant]
     Indication: PLASMA CELL MYELOMA
     Dosage: 1 BOTTLE
     Route: 065
  21. VELCADE [Concomitant]
     Route: 058
     Dates: start: 20110101, end: 20111231
  22. VELCADE [Concomitant]
     Route: 058
     Dates: start: 20130418, end: 20130429
  23. VELCADE [Concomitant]
     Route: 058
     Dates: start: 20130628, end: 20130705
  24. VELCADE [Concomitant]
     Route: 058
     Dates: start: 20130822, end: 20130829

REACTIONS (1)
  - Plasma cell leukaemia [Not Recovered/Not Resolved]
